FAERS Safety Report 5390552-X (Version None)
Quarter: 2007Q3

REPORT INFORMATION
  Report Type: 
  Country: None (occurrence: None)
  Receive Date: 20070718
  Receipt Date: 20061101
  Transmission Date: 20080115
  Serious: No
  Sender: FDA-Public Use
  Company Number: US-KINGPHARMUSA00001-K200601372

PATIENT

DRUGS (2)
  1. LEVOXYL [Suspect]
     Indication: HYPOTHYROIDISM
     Dosage: 25 MCG, QD
     Route: 048
     Dates: start: 20060825
  2. DESMOPRESSIN [Concomitant]
     Dosage: .1 UNK, 3 IN THE AM, 4 IN THE PM
     Route: 048

REACTIONS (1)
  - RASH [None]
